FAERS Safety Report 6457047-3 (Version None)
Quarter: 2009Q4

REPORT INFORMATION
  Report Type: 
  Country: None (occurrence: None)
  Receive Date: 20091125
  Receipt Date: 20091118
  Transmission Date: 20100525
  Serious: Yes (Other)
  Sender: FDA-Public Use
  Company Number: A0817752A

PATIENT
  Age: 40 Year
  Sex: Female

DRUGS (1)
  1. DYNACIRC CR [Suspect]
     Indication: DRUG USE FOR UNKNOWN INDICATION
     Dosage: 70MG SINGLE DOSE
     Route: 048
     Dates: start: 20090929, end: 20090929

REACTIONS (3)
  - OVERDOSE [None]
  - PHYSICAL ASSAULT [None]
  - SUICIDE ATTEMPT [None]
